FAERS Safety Report 6054118-0 (Version None)
Quarter: 2009Q1

REPORT INFORMATION
  Report Type: 
  Country: None (occurrence: None)
  Receive Date: 20090127
  Receipt Date: 20090115
  Transmission Date: 20090719
  Serious: Yes (Other)
  Sender: FDA-Public Use
  Company Number: JP-PFIZER INC-2009156419

PATIENT

DRUGS (8)
  1. LIPITOR [Suspect]
     Indication: DYSLIPIDAEMIA
     Dosage: 5 MG, 1X/DAY
     Route: 048
     Dates: start: 20060426
  2. HALCION [Suspect]
     Indication: INSOMNIA
     Dosage: 0.25 MG, 1X/DAY
     Route: 048
     Dates: start: 20071218, end: 20080408
  3. MYSLEE [Suspect]
     Indication: INSOMNIA
     Dosage: 5 MG, 1X/DAY
     Route: 048
     Dates: start: 20061201, end: 20071218
  4. MYSLEE [Suspect]
     Dosage: 5 MG, 1X/DAY
     Route: 048
     Dates: start: 20080408, end: 20080526
  5. MYSLEE [Suspect]
     Dosage: 5 MG, 1X/DAY
     Route: 048
     Dates: start: 20081126, end: 20081219
  6. DEPAS [Suspect]
     Indication: INSOMNIA
     Dosage: 0.5 MG, 1X/DAY
     Route: 048
     Dates: start: 20070417, end: 20080408
  7. LENDORMIN [Suspect]
     Indication: INSOMNIA
     Dosage: 0.5 MG, 1X/DAY
     Route: 048
     Dates: start: 20080808, end: 20081126
  8. SILECE [Suspect]
     Indication: INSOMNIA
     Dosage: 1 MG, 1X/DAY
     Route: 048
     Dates: start: 20080908, end: 20081126

REACTIONS (1)
  - BLEPHAROSPASM [None]
